FAERS Safety Report 15330006 (Version 1)
Quarter: 2018Q3

REPORT INFORMATION
  Report Type: Spontaneous
  Country: US (occurrence: US)
  Receive Date: 20180824
  Receipt Date: 20180824
  Transmission Date: 20181010
  Serious: Yes (Hospitalization)
  Sender: FDA-Public Use
  Company Number: None

PATIENT
  Age: 50 Year
  Sex: Female

DRUGS (2)
  1. OPSUMIT [Concomitant]
     Active Substance: MACITENTAN
  2. SILDENAFIL 20 MG [Suspect]
     Active Substance: SILDENAFIL
     Indication: PULMONARY HYPERTENSION
     Dosage: 14  AUG 2018
     Route: 048
     Dates: start: 2018

REACTIONS (1)
  - Malaise [None]

NARRATIVE: CASE EVENT DATE: 20180720
